FAERS Safety Report 7646531-2 (Version None)
Quarter: 2011Q3

REPORT INFORMATION
  Report Type: 
  Country: None (occurrence: None)
  Receive Date: 20110711
  Receipt Date: 20110324
  Transmission Date: 20111222
  Serious: Yes (Other)
  Sender: FDA-Public Use
  Company Number: IPC201103-000476

PATIENT

DRUGS (4)
  1. METOCLOPRAMIDE [Suspect]
     Dosage: ORAL
     Route: 048
     Dates: start: 20040501, end: 20100401
  2. METOCLOPRAMIDE [Suspect]
     Dosage: ORAL
     Route: 048
     Dates: start: 20040501, end: 20100401
  3. METOCLOPRAMIDE HYDROCHLORIDE [Suspect]
     Dosage: ORAL
     Route: 048
     Dates: start: 20040501, end: 20100401
  4. REGLAN [Suspect]
     Dosage: ORAL
     Route: 048
     Dates: start: 20040501, end: 20100401

REACTIONS (1)
  - PARKINSONISM [None]
